FAERS Safety Report 23208149 (Version 1)
Quarter: 2023Q4

REPORT INFORMATION
  Report Type: Spontaneous
  Country: US (occurrence: US)
  Receive Date: 20231121
  Receipt Date: 20231121
  Transmission Date: 20240109
  Serious: No
  Sender: FDA-Public Use
  Company Number: US-ELI_LILLY_AND_COMPANY-US202311011267

PATIENT
  Sex: Male

DRUGS (2)
  1. TALTZ [Suspect]
     Active Substance: IXEKIZUMAB
     Indication: Psoriatic arthropathy
     Dosage: 80 MG, WEEKLY (1/W)
     Route: 058
  2. TALTZ [Suspect]
     Active Substance: IXEKIZUMAB
     Indication: Psoriatic arthropathy
     Dosage: 80 MG, WEEKLY (1/W)
     Route: 058

REACTIONS (3)
  - Psoriatic arthropathy [Unknown]
  - Inappropriate schedule of product administration [Unknown]
  - Overdose [Unknown]
